FAERS Safety Report 7292919-1 (Version None)
Quarter: 2011Q1

REPORT INFORMATION
  Report Type: 
  Country: None (occurrence: None)
  Receive Date: 20110203
  Receipt Date: 20090619
  Transmission Date: 20110831
  Serious: No
  Sender: FDA-Public Use
  Company Number: 2009-00070

PATIENT
  Sex: Male
  Weight: 73.4827 kg

DRUGS (3)
  1. ZICAM COLD REMEDY NASAL GEL [Suspect]
     Indication: NASOPHARYNGITIS
     Dosage: QID
     Dates: start: 20090101
  2. ZICAM COLD REMEDY GEL SWABS [Suspect]
     Indication: NASOPHARYNGITIS
     Dosage: QID
     Dates: start: 20090101
  3. LISINOPRIL [Concomitant]

REACTIONS (2)
  - ANOSMIA [None]
  - AGEUSIA [None]
